FAERS Safety Report 6412414-9 (Version None)
Quarter: 2009Q4

REPORT INFORMATION
  Report Type: 
  Country: None (occurrence: None)
  Receive Date: 20091023
  Receipt Date: 20090925
  Transmission Date: 20100525
  Serious: No
  Sender: FDA-Public Use
  Company Number: US-BAYER-200914939BCC

PATIENT
  Age: 42 Year
  Sex: Female
  Weight: 79 kg

DRUGS (4)
  1. ALEVE [Suspect]
     Indication: ABDOMINAL PAIN
     Dosage: TOTAL DAILY DOSE: 440 MG  UNIT DOSE: 220 MG
     Route: 048
     Dates: start: 20090924
  2. SYNTHROID [Concomitant]
     Route: 065
  3. GNC MULTI-VITAMIN [Concomitant]
     Route: 065
  4. GNC FISH OIL [Concomitant]
     Route: 065

REACTIONS (7)
  - ABDOMINAL PAIN [None]
  - DIARRHOEA [None]
  - FLUSHING [None]
  - HYPERSENSITIVITY [None]
  - NAUSEA [None]
  - PRURITUS [None]
  - URTICARIA [None]
